FAERS Safety Report 7403972-6 (Version None)
Quarter: 2011Q2

REPORT INFORMATION
  Report Type: 
  Country: None (occurrence: None)
  Receive Date: 20110408
  Receipt Date: 20110331
  Transmission Date: 20111010
  Serious: Yes (Hospitalization)
  Sender: FDA-Public Use
  Company Number: US-BRISTOL-MYERS SQUIBB COMPANY-15639966

PATIENT
  Age: 45 Year
  Sex: Male

DRUGS (6)
  1. LOPINAVIR/RITONAVIR [Suspect]
     Indication: ANTIRETROVIRAL THERAPY
     Dosage: 1DF= 2 TABLETS, STRENGTH-200 MG /50 MG.
     Route: 048
  2. LAMIVUDINE + ZIDOVUDINE [Suspect]
     Indication: ANTIRETROVIRAL THERAPY
  3. ATAZANAVIR [Suspect]
     Indication: ANTIRETROVIRAL THERAPY
  4. ABACAVIR [Suspect]
     Indication: ANTIRETROVIRAL THERAPY
  5. LAMIVUDINE [Suspect]
     Indication: ANTIRETROVIRAL THERAPY
  6. RITONAVIR [Suspect]
     Indication: ANTIRETROVIRAL THERAPY
     Route: 048

REACTIONS (1)
  - RENAL FAILURE ACUTE [None]
